FAERS Safety Report 11515652 (Version 11)
Quarter: 2016Q3

REPORT INFORMATION
  Report Type: Report from Study
  Country: AU (occurrence: AU)
  Receive Date: 20150916
  Receipt Date: 20160812
  Transmission Date: 20161109
  Serious: Yes (Hospitalization, Other)
  Sender: FDA-Public Use
  Company Number: AU-SA-2015SA100779

PATIENT
  Age: 28 Year
  Sex: Female

DRUGS (17)
  1. MODAFINIL. [Concomitant]
     Active Substance: MODAFINIL
     Indication: MULTIPLE SCLEROSIS
     Route: 048
     Dates: start: 20151001, end: 20151018
  2. PANTOPRAZOLE [Concomitant]
     Active Substance: PANTOPRAZOLE SODIUM
     Dosage: 1 TAB(S), 40 MG, ORAL, TWICE A DAY, BD FOR 48H THEN 1 MONTH OF DAILY THEN CEASE.
     Route: 048
     Dates: start: 20150903
  3. ONDANSETRON [Concomitant]
     Active Substance: ONDANSETRON
     Indication: NAUSEA
     Dosage: 4 MG ORAL TABLET, ORAL, EVERY 12 HOURS, PRN
     Route: 048
     Dates: start: 20150829, end: 20150829
  4. LEMTRADA [Suspect]
     Active Substance: ALEMTUZUMAB
     Indication: MULTIPLE SCLEROSIS RELAPSE
     Route: 042
     Dates: start: 20150622, end: 20150626
  5. SYMMETREL [Concomitant]
     Active Substance: AMANTADINE HYDROCHLORIDE
     Indication: DRUG THERAPY
     Route: 048
     Dates: start: 2012
  6. MAGNESIUM [Concomitant]
     Active Substance: MAGNESIUM
     Indication: PROPHYLAXIS
     Route: 048
     Dates: start: 201302
  7. ASTRAFORTE [Concomitant]
     Indication: PROPHYLAXIS
     Route: 048
     Dates: start: 201302, end: 20150815
  8. ONDANSETRON [Concomitant]
     Active Substance: ONDANSETRON
     Indication: VOMITING
     Dosage: 4 MG ORAL TABLET, ORAL, EVERY 12 HOURS, PRN
     Route: 048
     Dates: start: 20150829, end: 20150829
  9. MODAFINIL. [Concomitant]
     Active Substance: MODAFINIL
     Indication: MULTIPLE SCLEROSIS
     Route: 048
     Dates: start: 20150713, end: 20150831
  10. CYMBALTA [Concomitant]
     Active Substance: DULOXETINE HYDROCHLORIDE
     Indication: MULTIPLE SCLEROSIS
     Dosage: WITH OR AFTER FOOD
     Route: 048
     Dates: start: 2012
  11. VITAMIN D [Concomitant]
     Active Substance: CHOLECALCIFEROL
     Indication: PROPHYLAXIS
     Route: 048
     Dates: start: 201210
  12. VALACICLOVIR [Concomitant]
     Active Substance: VALACYCLOVIR HYDROCHLORIDE
     Indication: PROPHYLAXIS
     Route: 048
     Dates: start: 20150621
  13. CYMBALTA [Concomitant]
     Active Substance: DULOXETINE HYDROCHLORIDE
     Indication: DRUG THERAPY
     Dosage: WITH OR AFTER FOOD
     Route: 048
     Dates: start: 2012
  14. SYMMETREL [Concomitant]
     Active Substance: AMANTADINE HYDROCHLORIDE
     Indication: MULTIPLE SCLEROSIS
     Route: 048
     Dates: start: 2012
  15. LEVLEN [Concomitant]
     Active Substance: ETHINYL ESTRADIOL\LEVONORGESTREL
     Indication: PROPHYLAXIS
     Dosage: ED 150 MCG-30MCG ORAL TABLET, 112 [4 X 28 TABLETS]), 1 TAB , ORAL DAILY, AT THE SAME TIME EACH DAY.
     Route: 048
     Dates: start: 20150618
  16. PROCHLORPERAZINE. [Concomitant]
     Active Substance: PROCHLORPERAZINE
     Indication: NAUSEA
     Dosage: 1 TAB(S), 5 MG, ORAL, THREE TIMES A DAY,PRN
     Route: 048
  17. PROCHLORPERAZINE. [Concomitant]
     Active Substance: PROCHLORPERAZINE
     Indication: VOMITING
     Dosage: 1 TAB(S), 5 MG, ORAL, THREE TIMES A DAY,PRN
     Route: 048

REACTIONS (20)
  - Neck pain [Recovered/Resolved]
  - Sensory disturbance [Recovered/Resolved]
  - Rash [Recovered/Resolved]
  - Iron deficiency [Not Recovered/Not Resolved]
  - Muscle contracture [Not Recovered/Not Resolved]
  - Hypotension [Recovered/Resolved]
  - Anal incontinence [Recovered/Resolved]
  - Muscular weakness [Not Recovered/Not Resolved]
  - Multiple sclerosis relapse [Recovered/Resolved]
  - Palpitations [Recovered/Resolved]
  - Vomiting [Recovered/Resolved]
  - Throat tightness [Recovered/Resolved]
  - Pain [Not Recovered/Not Resolved]
  - Vomiting [Recovered/Resolved]
  - Chest discomfort [Recovered/Resolved]
  - Nausea [Recovered/Resolved]
  - Headache [Not Recovered/Not Resolved]
  - Sensory disturbance [Not Recovered/Not Resolved]
  - Vomiting [Recovered/Resolved]
  - Gastroenteritis eosinophilic [Recovered/Resolved]

NARRATIVE: CASE EVENT DATE: 20150622
